FAERS Safety Report 11886530 (Version 5)
Quarter: 2016Q4

REPORT INFORMATION
  Report Type: Spontaneous
  Country: US (occurrence: US)
  Receive Date: 20160104
  Receipt Date: 20161025
  Transmission Date: 20170206
  Serious: Yes (Other)
  Sender: FDA-Public Use
  Company Number: US-BAYER-2015-495747

PATIENT
  Age: 26 Year
  Sex: Female
  Weight: 70.31 kg

DRUGS (4)
  1. AMOXICILLIN. [Concomitant]
     Active Substance: AMOXICILLIN
  2. YAZ [Suspect]
     Active Substance: DROSPIRENONE\ETHINYL ESTRADIOL
  3. YASMIN [Suspect]
     Active Substance: DROSPIRENONE\ETHINYL ESTRADIOL
     Indication: CONTRACEPTION
     Dosage: UNK
     Route: 048
     Dates: start: 201507, end: 20151218
  4. SYNTHROID [Concomitant]
     Active Substance: LEVOTHYROXINE SODIUM
     Indication: HYPOTHYROIDISM
     Dosage: 1 DF, QD
     Route: 048
     Dates: start: 200909

REACTIONS (18)
  - Nausea [Recovered/Resolved with Sequelae]
  - Emotional distress [None]
  - Diarrhoea [Recovered/Resolved]
  - Decreased appetite [Recovered/Resolved]
  - Menstruation delayed [Recovered/Resolved with Sequelae]
  - Chest pain [None]
  - Gastric disorder [None]
  - Pregnancy on oral contraceptive [Recovered/Resolved with Sequelae]
  - Abdominal pain lower [None]
  - Vomiting [Recovered/Resolved with Sequelae]
  - Crying [None]
  - Drug ineffective [None]
  - Flatulence [Recovered/Resolved]
  - Feeling abnormal [None]
  - Gastrointestinal disorder [Not Recovered/Not Resolved]
  - Blood pressure decreased [Recovered/Resolved with Sequelae]
  - Parovarian cyst [None]
  - Stress [None]

NARRATIVE: CASE EVENT DATE: 2015
